FAERS Safety Report 8830726 (Version 2)
Quarter: 2012Q4

REPORT INFORMATION
  Report Type: 
  Country: NL (occurrence: NL)
  Receive Date: 20121008
  Receipt Date: 20121114
  Transmission Date: 20130627
  Serious: Yes (Hospitalization)
  Sender: FDA-Public Use
  Company Number: NL-PFIZER INC-2012243641

PATIENT
  Age: 69 Year
  Sex: Male
  Weight: 87 kg

DRUGS (12)
  1. GENOTROPIN [Suspect]
     Indication: GROWTH HORMONE DEFICIENCY
     Dosage: 0.1 mg, 7/wk
     Route: 058
     Dates: start: 2004
  2. HYDROCORTISONE [Concomitant]
     Indication: ACTH DECREASED
     Dosage: UNK
     Dates: start: 20040628
  3. ASCAL CARDIO [Concomitant]
     Indication: PREVENTION
     Dosage: UNK
     Dates: start: 20040628
  4. CALCIUM CARBONATE [Concomitant]
     Indication: OSTEOPOROSIS
     Dosage: UNK
     Dates: start: 20040628
  5. MIXTARD [Concomitant]
     Indication: DIABETES MELLITUS
     Dosage: UNK
     Dates: start: 20040628
  6. MOVICOLON [Concomitant]
     Indication: OBSTIPATION
     Dosage: UNK
     Dates: start: 20040628
  7. OMNIC [Concomitant]
     Indication: BLADDER RETENTION
     Dosage: UNK
     Dates: start: 20040628
  8. PANTAZOL [Concomitant]
     Dosage: UNK
     Dates: start: 20040628
  9. PROSCAR [Concomitant]
     Indication: BLADDER RETENTION
     Dosage: UNK
     Dates: start: 20040628
  10. SELEKTINE [Concomitant]
     Indication: HYPERCHOLESTEROLEMIA
     Dosage: UNK
     Dates: start: 20040628
  11. SELOKEEN [Concomitant]
     Indication: HYPERTENSION
     Dosage: UNK
     Dates: start: 20040628
  12. ZESTRIL [Concomitant]
     Indication: HYPERTENSION
     Dosage: UNK
     Dates: start: 20040628

REACTIONS (1)
  - Cerebrospinal fluid leakage [Recovered/Resolved with Sequelae]
